FAERS Safety Report 10438441 (Version 1)
Quarter: 2014Q3

REPORT INFORMATION
  Report Type: Spontaneous
  Country: JP (occurrence: JP)
  Receive Date: 20140908
  Receipt Date: 20140908
  Transmission Date: 20150326
  Serious: Yes (Death)
  Sender: FDA-Public Use
  Company Number: JP-GLAXOSMITHKLINE-B1022201A

PATIENT
  Age: 66 Year
  Sex: Male
  Weight: 60 kg

DRUGS (7)
  1. VOTRIENT [Suspect]
     Active Substance: PAZOPANIB HYDROCHLORIDE
     Indication: RENAL CANCER
     Dosage: 600MG PER DAY
     Route: 048
     Dates: start: 20140321, end: 20140804
  2. DIOVAN [Suspect]
     Active Substance: VALSARTAN
     Indication: HYPERTENSION
     Dosage: 40MG PER DAY
     Route: 048
     Dates: start: 20140311, end: 20140804
  3. ANALGESICS [Concomitant]
     Active Substance: UNSPECIFIED INGREDIENT
     Indication: ARTHRALGIA
     Route: 048
  4. ASTRINGENT [Concomitant]
     Active Substance: ALUMINUM ACETATE
  5. ANTI-ITCH MEDICATION [Concomitant]
  6. ZYLORIC [Suspect]
     Active Substance: ALLOPURINOL
     Indication: HYPERURICAEMIA
     Dosage: 100MG PER DAY
     Route: 048
     Dates: start: 20140311, end: 20140804
  7. ANTI INFLAMMATORY [Concomitant]

REACTIONS (10)
  - Retroperitoneal abscess [Fatal]
  - Septic shock [Fatal]
  - Large intestine perforation [Fatal]
  - Pain [Unknown]
  - Multi-organ failure [Fatal]
  - Necrotising fasciitis [Fatal]
  - Disseminated intravascular coagulation [Fatal]
  - Dyspnoea [Unknown]
  - Arthralgia [Unknown]
  - Abdominal pain [Fatal]

NARRATIVE: CASE EVENT DATE: 201407
